FAERS Safety Report 5088735-1 (Version None)
Quarter: 2006Q3

REPORT INFORMATION
  Report Type: 
  Country: None (occurrence: None)
  Receive Date: 20060825
  Receipt Date: 20060129
  Transmission Date: 20061208
  Serious: Yes (Life-Threatening, Hospitalization)
  Sender: FDA-Public Use
  Company Number: LU-GLAXOSMITHKLINE-B0408950A

PATIENT
  Age: 84 Year
  Sex: Female
  Weight: 99 kg

DRUGS (8)
  1. SEROXAT [Suspect]
     Dosage: 20MG TWICE PER DAY
     Route: 048
  2. ATORVASTATIN CALCIUM [Concomitant]
     Indication: LOW DENSITY LIPOPROTEIN INCREASED
     Dosage: 20MG PER DAY
     Route: 048
  3. ALLOPURINOL [Concomitant]
     Dosage: 100MG PER DAY
     Route: 048
  4. RANITIDINE [Concomitant]
     Indication: PROPHYLAXIS
     Dosage: 150MG PER DAY
     Route: 048
  5. FUROSEMIDE [Concomitant]
     Dosage: 40MG THREE TIMES PER DAY
     Route: 048
  6. CALCITRIOL [Concomitant]
     Indication: HYPERPARATHYROIDISM SECONDARY
     Dosage: .25UG TWO TIMES PER WEEK
     Route: 048
  7. INSULIN MIXTARD [Concomitant]
     Dosage: 38UD PER DAY
     Route: 058
  8. ENOXAPARIN SODIUM [Concomitant]
     Indication: PROPHYLAXIS
     Dosage: 40MG PER DAY
     Route: 058
     Dates: start: 20051026, end: 20051221

REACTIONS (7)
  - ABDOMINAL DISCOMFORT [None]
  - CYTOLYTIC HEPATITIS [None]
  - GINGIVAL BLEEDING [None]
  - HEPATOTOXICITY [None]
  - NAUSEA [None]
  - TRANSAMINASES INCREASED [None]
  - VOMITING [None]
